FAERS Safety Report 12247677 (Version 1)
Quarter: 2016Q2

REPORT INFORMATION
  Report Type: Spontaneous
  Country: GB (occurrence: GB)
  Receive Date: 20160408
  Receipt Date: 20160408
  Transmission Date: 20160815
  Serious: Yes (Hospitalization, Other)
  Sender: FDA-Public Use
  Company Number: GB-AMGEN-GBRSP2016043482

PATIENT
  Age: 80 Year
  Sex: Female
  Weight: 50.8 kg

DRUGS (5)
  1. OMEPRAZOLE. [Concomitant]
     Active Substance: OMEPRAZOLE
  2. GAVISCON ADVANCE [Concomitant]
     Active Substance: POTASSIUM BICARBONATE\SODIUM ALGINATE
  3. PARACETAMOL [Concomitant]
     Active Substance: ACETAMINOPHEN
  4. PROLIA [Suspect]
     Active Substance: DENOSUMAB
     Indication: PRODUCT USED FOR UNKNOWN INDICATION
     Dosage: UNK
     Route: 058
  5. ETORICOXIB [Suspect]
     Active Substance: ETORICOXIB
     Indication: PAIN
     Dosage: 60 MG, QD
     Route: 048
     Dates: start: 2013, end: 20160319

REACTIONS (2)
  - Retroperitoneal haemorrhage [Recovering/Resolving]
  - Retroperitoneal haematoma [Recovering/Resolving]

NARRATIVE: CASE EVENT DATE: 20160316
